FAERS Safety Report 12576723 (Version 2)
Quarter: 2016Q3

REPORT INFORMATION
  Report Type: Spontaneous
  Country: IT (occurrence: IT)
  Receive Date: 20160720
  Receipt Date: 20160929
  Transmission Date: 20161109
  Serious: Yes (Other)
  Sender: FDA-Public Use
  Company Number: IT-FERRINGPH-2016FE03146

PATIENT

DRUGS (1)
  1. MINIRIN [Suspect]
     Active Substance: DESMOPRESSIN ACETATE
     Indication: ENURESIS
     Dosage: 1 DF, DAILY
     Route: 048
     Dates: start: 20160630, end: 20160704

REACTIONS (1)
  - Hemianopia heteronymous [Recovered/Resolved]

NARRATIVE: CASE EVENT DATE: 20160702
